FAERS Safety Report 9443666 (Version 1)
Quarter: 2013Q3

REPORT INFORMATION
  Report Type: Spontaneous
  Country: US (occurrence: US)
  Receive Date: 20130806
  Receipt Date: 20130806
  Transmission Date: 20140515
  Serious: Yes (Hospitalization, Other)
  Sender: FDA-Public Use
  Company Number: US-PFIZER INC-2012099711

PATIENT
  Age: 61 Year
  Sex: Female

DRUGS (4)
  1. ENBREL [Suspect]
     Indication: RHEUMATOID ARTHRITIS
     Dosage: 50 MG, QWK
     Dates: start: 20050301, end: 2005
  2. ENBREL [Suspect]
     Dosage: 50 MG, WEEKLY
     Dates: start: 20120414
  3. ENBREL [Suspect]
     Dosage: 50 MG, WEEKLY
     Dates: end: 201205
  4. METHOTREXATE SODIUM [Suspect]

REACTIONS (11)
  - Intestinal obstruction [Recovered/Resolved]
  - Hospitalisation [Recovered/Resolved]
  - Vomiting [Recovered/Resolved]
  - Diarrhoea [Recovered/Resolved]
  - Drug hypersensitivity [Recovered/Resolved]
  - Tooth infection [Recovered/Resolved]
  - Localised infection [Not Recovered/Not Resolved]
  - Balance disorder [Recovered/Resolved]
  - Gait disturbance [Recovered/Resolved]
  - Arthralgia [Recovered/Resolved]
  - Pain [Recovered/Resolved]
